FAERS Safety Report 24638744 (Version 1)
Quarter: 2024Q4

REPORT INFORMATION
  Report Type: Spontaneous
  Country: CA (occurrence: CA)
  Receive Date: 20241119
  Receipt Date: 20241119
  Transmission Date: 20250115
  Serious: Yes (Other)
  Sender: MYLAN
  Company Number: CA-MYLANLABS-2024M1102799

PATIENT
  Age: 71 Year
  Sex: Female

DRUGS (19)
  1. AMLODIPINE [Suspect]
     Active Substance: AMLODIPINE BESYLATE
     Indication: Blood pressure abnormal
     Dosage: UNK
     Route: 065
  2. CAMZYOS [Suspect]
     Active Substance: MAVACAMTEN
     Indication: Hypertrophic cardiomyopathy
     Dosage: 2.5 MILLIGRAM, QD (1 EVERY 1 DAYS)
     Route: 048
  3. CAMZYOS [Suspect]
     Active Substance: MAVACAMTEN
     Dosage: 5 MILLIGRAM, QD (1 EVERY 1 DAYS)
     Route: 048
  4. ASA APOTEX [Concomitant]
     Dosage: UNK
     Route: 065
  5. CALCIUM [Concomitant]
     Active Substance: CALCIUM
     Dosage: UNK
     Route: 065
  6. CANDESARTAN [Concomitant]
     Active Substance: CANDESARTAN
     Indication: Blood pressure abnormal
     Dosage: 8 MILLIGRAM, QD (1 EVERY 1 DAYS)
     Route: 065
  7. CLOPIDOGREL BISULFATE [Concomitant]
     Active Substance: CLOPIDOGREL BISULFATE
     Dosage: UNK
     Route: 065
  8. CRANBERRY [Concomitant]
     Active Substance: CRANBERRY
     Dosage: UNK
     Route: 065
  9. .ALPHA.-TOCOPHEROL ACETATE, D- [Concomitant]
     Active Substance: .ALPHA.-TOCOPHEROL ACETATE, D-
     Dosage: UNK
     Route: 065
  10. GLUCOSAMINE [Concomitant]
     Active Substance: GLUCOSAMINE
     Dosage: UNK
     Route: 065
  11. LIPITOR [Concomitant]
     Active Substance: ATORVASTATIN CALCIUM
     Dosage: UNK
     Route: 065
  12. METOPROLOL [Concomitant]
     Active Substance: METOPROLOL
     Dosage: UNK
     Route: 065
  13. TAGETES SPP. [Concomitant]
     Dosage: UNK
     Route: 065
  14. HERBALS\TURMERIC [Concomitant]
     Active Substance: HERBALS\TURMERIC
     Dosage: UNK
     Route: 065
  15. VITAMIN A [Concomitant]
     Active Substance: VITAMIN A
     Dosage: UNK
     Route: 065
  16. VITAMIN B12 [Concomitant]
     Active Substance: CYANOCOBALAMIN
     Dosage: UNK
     Route: 065
  17. VITAMIN D3 [Concomitant]
     Active Substance: CHOLECALCIFEROL
     Dosage: UNK
     Route: 065
  18. ASCORBIC ACID [Concomitant]
     Active Substance: ASCORBIC ACID
     Dosage: UNK
     Route: 065
  19. DIETARY SUPPLEMENT\HERBALS\MILK THISTLE [Concomitant]
     Active Substance: MILK THISTLE
     Dosage: UNK
     Route: 065

REACTIONS (8)
  - Cardiac disorder [Recovered/Resolved]
  - Joint swelling [Recovered/Resolved]
  - Asthenia [Recovered/Resolved]
  - Cough [Recovered/Resolved]
  - Fatigue [Recovered/Resolved]
  - Headache [Recovered/Resolved]
  - Incorrect dose administered [Recovered/Resolved]
  - Product dispensing error [Recovered/Resolved]
